FAERS Safety Report 11671315 (Version 1)
Quarter: 2015Q4

REPORT INFORMATION
  Report Type: Spontaneous
  Country: US (occurrence: US)
  Receive Date: 20151027
  Receipt Date: 20151027
  Transmission Date: 20160304
  Serious: No
  Sender: FDA-Public Use
  Company Number: US-ELI_LILLY_AND_COMPANY-US201003007286

PATIENT
  Age: 74 Year
  Sex: Female

DRUGS (1)
  1. FORTEO [Suspect]
     Active Substance: TERIPARATIDE
     Dosage: UNK, UNKNOWN
     Route: 065

REACTIONS (8)
  - Neck pain [Unknown]
  - Pain [Unknown]
  - Muscle spasms [Unknown]
  - Cough [Unknown]
  - Fall [Recovered/Resolved]
  - Constipation [Unknown]
  - Arthralgia [Unknown]
  - Memory impairment [Unknown]

NARRATIVE: CASE EVENT DATE: 201005
